FAERS Safety Report 5661013-5 (Version None)
Quarter: 2008Q1

REPORT INFORMATION
  Report Type: 
  Country: None (occurrence: None)
  Receive Date: 20080311
  Receipt Date: 20080307
  Transmission Date: 20080703
  Serious: Yes (Hospitalization)
  Sender: FDA-Public Use
  Company Number: US-BOEHRINGER INGELHEIM GMBH, GERMANY-2008-BP-02817BP

PATIENT
  Age: 92 Year
  Sex: Female

DRUGS (8)
  1. ATROVENT HFA [Suspect]
     Indication: DYSPNOEA
     Route: 055
     Dates: start: 20071001
  2. ASPIRIN [Concomitant]
  3. ATENOLOL [Concomitant]
     Indication: HYPERTENSION
  4. NIFEDIPINE [Concomitant]
  5. PLAVIX [Concomitant]
  6. BUMEX [Concomitant]
  7. CARDURA [Concomitant]
  8. PRAVACHOL [Concomitant]

REACTIONS (2)
  - DYSPNOEA [None]
  - PULMONARY OEDEMA [None]
